FAERS Safety Report 4369555-X (Version None)
Quarter: 2004Q2

REPORT INFORMATION
  Report Type: 
  Country: None (occurrence: None)
  Receive Date: 20040526
  Receipt Date: 20040406
  Transmission Date: 20050107
  Serious: Yes (Hospitalization)
  Sender: FDA-Public Use
  Company Number: USA040260334

PATIENT
  Age: 16 Year
  Sex: Male

DRUGS (3)
  1. ZYPREXA [Suspect]
     Indication: TOURETTE'S DISORDER
     Dosage: 15 MG/DAY
     Dates: start: 20000225, end: 20040205
  2. PROZAC [Suspect]
  3. TOPAMAX [Concomitant]

REACTIONS (1)
  - GYNAECOMASTIA [None]
